FAERS Safety Report 8156363-7 (Version None)
Quarter: 2012Q1

REPORT INFORMATION
  Report Type: 
  Country: None (occurrence: None)
  Receive Date: 20120216
  Receipt Date: 20120207
  Transmission Date: 20120608
  Serious: Yes (Hospitalization)
  Sender: FDA-Public Use
  Company Number: 1000028305

PATIENT
  Age: 50 Year
  Sex: Male

DRUGS (11)
  1. NEBIVOLOL [Suspect]
     Dosage: 5 MG (5 MG, 1 IN 1 D), ORAL
     Route: 048
     Dates: end: 20111213
  2. CLOZAPINE [Suspect]
     Indication: SCHIZOPHRENIA, PARANOID TYPE
     Dosage: 400 MG (400 MG, 1 IN 1 D), ORAL
     Route: 048
  3. RIVOTRIL (CLONAZEPAM) (CLONAZEPAM) [Concomitant]
  4. NOVALGIN (METAMIZOLE SODIUM) (METAMIZOLE SODIUM) [Concomitant]
  5. NORVASC [Concomitant]
  6. DIPIDOLOR (PIRITRAMIDE) (PIRITRAMIDE) [Concomitant]
  7. PANTOLOC (PANTOPRAZOLE SODIUM SESQUIHYDRATE) (PANTOPRAZOLE SODIUM SESQ [Concomitant]
  8. CLOZAPINE [Suspect]
     Indication: SCHIZOPHRENIA, PARANOID TYPE
     Dosage: 250 MG (250 MG, 1 IN 1 D), ORAL
     Route: 048
     Dates: start: 20111209, end: 20111213
  9. LASIX [Concomitant]
  10. LISOPRIL (LISINOPRIL) (LISINOPRIL)) [Concomitant]
  11. UNASYN [Suspect]
     Indication: PNEUMONIA
     Dosage: 3 GRAM (3 GM, 1 IN 1 D), ORAL
     Route: 048
     Dates: start: 20111209, end: 20111213

REACTIONS (1)
  - MEGACOLON [None]
